FAERS Safety Report 7563501-3 (Version None)
Quarter: 2011Q2

REPORT INFORMATION
  Report Type: 
  Country: None (occurrence: None)
  Receive Date: 20110622
  Receipt Date: 20110613
  Transmission Date: 20111010
  Serious: Yes (Death, Other)
  Sender: FDA-Public Use
  Company Number: US-TEVA-287058USA

PATIENT
  Sex: Female

DRUGS (1)
  1. PACLITAXEL [Suspect]
     Dates: start: 20110523, end: 20110523

REACTIONS (4)
  - CARDIAC ARREST [None]
  - CONVULSION [None]
  - RESPIRATORY ARREST [None]
  - EYE DISORDER [None]
